FAERS Safety Report 14298666 (Version 2)
Quarter: 2018Q1

REPORT INFORMATION
  Report Type: Report from Study
  Country: CA (occurrence: CA)
  Receive Date: 20171218
  Receipt Date: 20180119
  Transmission Date: 20180509
  Serious: Yes (Death)
  Sender: FDA-Public Use
  Company Number: CA-HLSUS-2017-CA-001280

PATIENT
  Sex: Male

DRUGS (1)
  1. CLOZARIL [Suspect]
     Active Substance: CLOZAPINE
     Route: 048
     Dates: start: 20140604

REACTIONS (5)
  - Hip fracture [Unknown]
  - Prostate cancer metastatic [Unknown]
  - Death [Fatal]
  - Fall [Unknown]
  - Refusal of treatment by patient [Unknown]
